FAERS Safety Report 6936122-0 (Version None)
Quarter: 2010Q3

REPORT INFORMATION
  Report Type: 
  Country: None (occurrence: None)
  Receive Date: 20100819
  Receipt Date: 20100819
  Transmission Date: 20110219
  Serious: No
  Sender: FDA-Public Use
  Company Number: None

PATIENT
  Age: 75 Year
  Sex: Female

DRUGS (1)
  1. FENTANYL [Suspect]
     Dosage: APPLY 1 PATCH EVERY 72 HOURS

REACTIONS (2)
  - DRUG WITHDRAWAL SYNDROME [None]
  - PRODUCT MEASURED POTENCY ISSUE [None]
